FAERS Safety Report 5308292-1 (Version None)
Quarter: 2007Q2

REPORT INFORMATION
  Report Type: 
  Country: None (occurrence: None)
  Receive Date: 20070423
  Receipt Date: 20070423
  Transmission Date: 20071010
  Serious: Yes (Life-Threatening, Hospitalization)
  Sender: FDA-Public Use
  Company Number: None

PATIENT
  Sex: Male
  Weight: 4.0824 kg

DRUGS (1)
  1. QUESTRAN [Suspect]
     Indication: DIARRHOEA
     Dosage: 500MG    2 TIMES DAILY  PO
     Route: 048
     Dates: start: 20041114, end: 20041114

REACTIONS (4)
  - BLOOD POTASSIUM INCREASED [None]
  - BLOOD SODIUM DECREASED [None]
  - DEHYDRATION [None]
  - WEIGHT DECREASED [None]
